FAERS Safety Report 9300798 (Version 1)
Quarter: 2013Q2

REPORT INFORMATION
  Report Type: Spontaneous
  Country: US (occurrence: None)
  Receive Date: 20130520
  Receipt Date: 20130520
  Transmission Date: 20140414
  Serious: Yes (Other)
  Sender: FDA-Public Use
  Company Number: None

PATIENT
  Age: 56 Year
  Sex: Male
  Weight: 133.81 kg

DRUGS (1)
  1. NOVOLOG [Suspect]
     Indication: TYPE 2 DIABETES MELLITUS
     Dosage: 10 UNITS BEFORE MEALS SC
     Route: 058
     Dates: start: 20130513, end: 20130515

REACTIONS (9)
  - Headache [None]
  - Headache [None]
  - Thinking abnormal [None]
  - Confusional state [None]
  - Blood pressure decreased [None]
  - Heart rate increased [None]
  - Wheezing [None]
  - Chest pain [None]
  - Chest discomfort [None]
